FAERS Safety Report 11125894 (Version 2)
Quarter: 2015Q2

REPORT INFORMATION
  Report Type: Report from Study
  Country: US (occurrence: US)
  Receive Date: 20150520
  Receipt Date: 20150602
  Transmission Date: 20150821
  Serious: Yes (Hospitalization, Other)
  Sender: FDA-Public Use
  Company Number: US-GILEAD-2015-0154143

PATIENT
  Age: 67 Year
  Sex: Male

DRUGS (4)
  1. AMBRISENTAN [Suspect]
     Active Substance: AMBRISENTAN
     Indication: PRODUCT USED FOR UNKNOWN INDICATION
     Dosage: 5 MG, QD
     Route: 065
     Dates: start: 20150417
  2. AMBRISENTAN [Suspect]
     Active Substance: AMBRISENTAN
     Dosage: 5 MG, QD
     Route: 065
     Dates: start: 20150513
  3. XARELTO [Concomitant]
     Active Substance: RIVAROXABAN
  4. REVATIO [Concomitant]
     Active Substance: SILDENAFIL CITRATE

REACTIONS (2)
  - Pneumonia [Unknown]
  - Respiratory syncytial virus infection [Unknown]
